FAERS Safety Report 9943824 (Version 4)
Quarter: 2014Q2

REPORT INFORMATION
  Report Type: Spontaneous
  Country: US (occurrence: US)
  Receive Date: 20140303
  Receipt Date: 20140501
  Transmission Date: 20141212
  Serious: Yes (Hospitalization, Disabling, Other)
  Sender: FDA-Public Use
  Company Number: US-009507513-1201USA03449

PATIENT
  Sex: Female
  Weight: 63.49 kg

DRUGS (12)
  1. FOSAMAX [Suspect]
     Indication: OSTEOPENIA
     Dosage: 70 MG, QW
     Route: 048
     Dates: start: 200205
  2. FOSAMAX [Suspect]
     Indication: OSTEOPOROSIS POSTMENOPAUSAL
  3. ALENDRONATE SODIUM [Suspect]
     Indication: OSTEOPENIA
     Dosage: 70 MG, QW
     Dates: start: 200804, end: 200903
  4. ALENDRONATE SODIUM [Suspect]
     Indication: OSTEOPOROSIS POSTMENOPAUSAL
  5. VITAMIN D (UNSPECIFIED) [Concomitant]
     Indication: OSTEOPENIA
     Dosage: 400, IU, UNK
     Dates: start: 1930
  6. VITAMIN D (UNSPECIFIED) [Concomitant]
     Indication: OSTEOPOROSIS POSTMENOPAUSAL
  7. CALCIUM (UNSPECIFIED) [Concomitant]
     Indication: OSTEOPENIA
     Dosage: 600 MG, UNK
     Dates: start: 1930
  8. CALCIUM (UNSPECIFIED) [Concomitant]
     Indication: OSTEOPOROSIS POSTMENOPAUSAL
  9. SYNTHROID [Concomitant]
     Indication: AUTOIMMUNE THYROIDITIS
     Dosage: UNK MICROGRAM, QD
     Dates: start: 1960
  10. SYNTHROID [Concomitant]
     Indication: POST PROCEDURAL HYPOTHYROIDISM
  11. CALCITROL [Concomitant]
     Indication: OSTEOPENIA
     Dosage: UNK
  12. CALCITROL [Concomitant]
     Indication: OSTEOPOROSIS

REACTIONS (44)
  - Intramedullary rod insertion [Unknown]
  - Femur fracture [Recovered/Resolved]
  - Anaemia postoperative [Recovering/Resolving]
  - Hypertension [Unknown]
  - Urinary tract infection [Unknown]
  - Hyperlipidaemia [Unknown]
  - Fluid retention [Unknown]
  - Hypoaesthesia [Unknown]
  - Ecchymosis [Unknown]
  - Tonsillectomy [Unknown]
  - Hypercalcaemia [Unknown]
  - Bronchitis [Unknown]
  - Platelet count increased [Unknown]
  - Appendicectomy [Unknown]
  - Limb asymmetry [Unknown]
  - Cardiac flutter [Unknown]
  - Laboratory test abnormal [Unknown]
  - Laboratory test abnormal [Unknown]
  - Spinal osteoarthritis [Not Recovered/Not Resolved]
  - Cyst removal [Unknown]
  - Joint injury [Unknown]
  - Joint injury [Unknown]
  - Joint injury [Unknown]
  - Contusion [Unknown]
  - Bursitis [Unknown]
  - Osteoarthritis [Unknown]
  - Intervertebral disc degeneration [Not Recovered/Not Resolved]
  - Joint swelling [Unknown]
  - Hypocalcaemia [Unknown]
  - Pain in jaw [Unknown]
  - Neck pain [Unknown]
  - Nausea [Recovered/Resolved]
  - Drug hypersensitivity [Recovered/Resolved]
  - Epigastric discomfort [Recovered/Resolved]
  - Constipation [Recovered/Resolved]
  - Neck pain [Unknown]
  - Dizziness [Unknown]
  - Nausea [Unknown]
  - Vomiting [Unknown]
  - Abdominal pain [Unknown]
  - Drug ineffective [Unknown]
  - Drug ineffective [Unknown]
  - Arthralgia [Unknown]
  - Arthralgia [Unknown]
